FAERS Safety Report 24899689 (Version 1)
Quarter: 2025Q1

REPORT INFORMATION
  Report Type: Spontaneous
  Country: US (occurrence: None)
  Receive Date: 20250128
  Receipt Date: 20250128
  Transmission Date: 20250408
  Serious: No
  Sender: FDA-CTU
  Company Number: None

PATIENT
  Age: 39 Year
  Sex: Male
  Weight: 110.25 kg

DRUGS (8)
  1. IPRATROPIUM BROMIDE [Suspect]
     Active Substance: IPRATROPIUM BROMIDE
     Indication: Hypersensitivity
     Dosage: OTHER QUANTITY : 2 SPRAY(S);?FREQUENCY : 3 TIMES A DAY;?
     Route: 055
     Dates: start: 20250127, end: 20250128
  2. DEVICE [Concomitant]
     Active Substance: DEVICE
  3. LEXAPRO [Concomitant]
     Active Substance: ESCITALOPRAM OXALATE
  4. ZYRTEC [Concomitant]
     Active Substance: CETIRIZINE HYDROCHLORIDE
  5. PROPRANOLOL [Concomitant]
     Active Substance: PROPRANOLOL HYDROCHLORIDE
  6. STRATTERA [Concomitant]
     Active Substance: ATOMOXETINE HYDROCHLORIDE
  7. PANTOPRAZOLE [Concomitant]
     Active Substance: PANTOPRAZOLE
  8. VITAMINS [Concomitant]
     Active Substance: VITAMINS

REACTIONS (2)
  - Oropharyngeal pain [None]
  - Headache [None]

NARRATIVE: CASE EVENT DATE: 20250128
